FAERS Safety Report 10230077 (Version 8)
Quarter: 2015Q3

REPORT INFORMATION
  Report Type: Spontaneous
  Country: US (occurrence: US)
  Receive Date: 20140611
  Receipt Date: 20150727
  Transmission Date: 20151125
  Serious: Yes (Hospitalization)
  Sender: FDA-Public Use
  Company Number: US-PFIZER INC-2014153424

PATIENT
  Age: 68 Year
  Sex: Female
  Weight: 62 kg

DRUGS (11)
  1. SOMAVERT [Suspect]
     Active Substance: PEGVISOMANT
     Indication: BLOOD GROWTH HORMONE ABNORMAL
     Dosage: 10 MG, DAILY INJECTION
     Route: 058
     Dates: start: 20140507
  2. PREGNENOLONE [Suspect]
     Active Substance: PREGNENOLONE
     Dosage: 100 UNK, SINGLE
  3. SOMAVERT [Suspect]
     Active Substance: PEGVISOMANT
     Dosage: 10 MG, ALTERNATE DAY
     Route: 058
  4. DHEA [Suspect]
     Active Substance: PRASTERONE
     Indication: BLOOD GROWTH HORMONE
     Dosage: 25 MG, DAILY
  5. PREGNENOLONE [Suspect]
     Active Substance: PREGNENOLONE
     Indication: BLOOD GROWTH HORMONE
     Dosage: 50, DAILY
  6. SOMAVERT [Suspect]
     Active Substance: PEGVISOMANT
     Indication: GIGANTISM
     Dosage: 10 MG, ALTERNATE DAY
     Route: 058
     Dates: start: 20140801
  7. SOMAVERT [Suspect]
     Active Substance: PEGVISOMANT
     Dosage: 10 MG, EVERY 3RD DAY
     Route: 058
  8. ARMOUR THYROID [Concomitant]
     Active Substance: THYROID, PORCINE\THYROID, UNSPECIFIED
     Indication: HYPOTHYROIDISM
     Dosage: 13 MG, DAILY
  9. LEXAPRO [Concomitant]
     Active Substance: ESCITALOPRAM OXALATE
     Dosage: 10 MG, DAILY
  10. SOMAVERT [Suspect]
     Active Substance: PEGVISOMANT
     Indication: ACROMEGALY
     Dosage: 10 MG, DAILY
     Route: 058
     Dates: start: 201404
  11. SOMAVERT [Suspect]
     Active Substance: PEGVISOMANT
     Dosage: 10 MG, EVERY 2 DAYS
     Route: 058

REACTIONS (23)
  - Dry skin [Recovering/Resolving]
  - Dehydration [Recovering/Resolving]
  - Injection site irritation [Recovered/Resolved]
  - Nephrolithiasis [Not Recovered/Not Resolved]
  - Sepsis [Unknown]
  - Malaise [Recovering/Resolving]
  - Weight increased [Not Recovered/Not Resolved]
  - Lip dry [Recovering/Resolving]
  - Asthenia [Recovered/Resolved]
  - Fatigue [Recovered/Resolved]
  - Incorrect product storage [Unknown]
  - Alopecia [Recovered/Resolved]
  - Bacterial infection [Unknown]
  - Drug intolerance [Unknown]
  - Injection site mass [Recovering/Resolving]
  - Dizziness [Unknown]
  - Hair texture abnormal [Recovering/Resolving]
  - Food poisoning [Recovering/Resolving]
  - Injection site swelling [Not Recovered/Not Resolved]
  - Discomfort [Unknown]
  - Dry eye [Unknown]
  - Hunger [Unknown]
  - Injection site mass [Unknown]

NARRATIVE: CASE EVENT DATE: 2014
